FAERS Safety Report 15462840 (Version 1)
Quarter: 2018Q4

REPORT INFORMATION
  Report Type: Spontaneous
  Country: US (occurrence: US)
  Receive Date: 20181004
  Receipt Date: 20181004
  Transmission Date: 20190204
  Serious: No
  Sender: FDA-Public Use
  Company Number: US-TEVA-2018-US-959467

PATIENT
  Age: 43 Year
  Sex: Female

DRUGS (1)
  1. ALPRAZOLAM - ACTAVIS [Suspect]
     Active Substance: ALPRAZOLAM
     Indication: PRODUCT USED FOR UNKNOWN INDICATION
     Route: 065

REACTIONS (3)
  - Disturbance in attention [Unknown]
  - Crying [Unknown]
  - Depression [Unknown]
